FAERS Safety Report 19705211 (Version 9)
Quarter: 2022Q3

REPORT INFORMATION
  Report Type: Spontaneous
  Country: US (occurrence: US)
  Receive Date: 20210816
  Receipt Date: 20220822
  Transmission Date: 20221027
  Serious: Yes (Other)
  Sender: FDA-Public Use
  Company Number: US-PFIZER INC-2021555693

PATIENT
  Age: 87 Year
  Sex: Female
  Weight: 41.28 kg

DRUGS (4)
  1. PREMARIN [Suspect]
     Active Substance: ESTROGENS, CONJUGATED
     Indication: Hysterectomy
     Dosage: 2.5 MG (TWO 1.25 MG TABLET), A DAY
  2. PREMARIN [Suspect]
     Active Substance: ESTROGENS, CONJUGATED
     Indication: Hormone replacement therapy
     Dosage: 3.75 MG, DAILY
  3. PREMARIN [Suspect]
     Active Substance: ESTROGENS, CONJUGATED
     Dosage: 2.5 MG, DAILY
  4. PREMARIN [Suspect]
     Active Substance: ESTROGENS, CONJUGATED
     Dosage: 2.5 MG ON MON, WED, FRI, SAT, SUN AND 3.75 MG ON TUES, THURS

REACTIONS (19)
  - Drug dependence [Unknown]
  - Cerebral disorder [Unknown]
  - Confusional state [Unknown]
  - Fatigue [Unknown]
  - Body height decreased [Unknown]
  - Mood altered [Unknown]
  - Frustration tolerance decreased [Unknown]
  - Illness [Unknown]
  - Dry mouth [Unknown]
  - Anxiety [Unknown]
  - Insomnia [Unknown]
  - Withdrawal syndrome [Unknown]
  - Thinking abnormal [Unknown]
  - Feeling cold [Unknown]
  - Decreased appetite [Unknown]
  - Thirst decreased [Unknown]
  - Malaise [Unknown]
  - Mental disorder [Unknown]
  - Off label use [Unknown]
